FAERS Safety Report 16143721 (Version 21)
Quarter: 2024Q1

REPORT INFORMATION
  Report Type: Spontaneous
  Country: US (occurrence: US)
  Receive Date: 20190401
  Receipt Date: 20240328
  Transmission Date: 20240410
  Serious: Yes (Other)
  Sender: FDA-Public Use
  Company Number: US-PFIZER INC-2017117972

PATIENT
  Age: 34 Year
  Sex: Male
  Weight: 97 kg

DRUGS (5)
  1. XYNTHA [Suspect]
     Active Substance: ANTIHEMOPHILIC FACTOR, HUMAN RECOMBINANT RESIDUES 743-1636 DELETED
     Indication: Factor VIII deficiency
     Dosage: 3000 IU, ALTERNATE DAY (THREE TIMES A WEEK)
     Route: 042
  2. XYNTHA [Suspect]
     Active Substance: ANTIHEMOPHILIC FACTOR, HUMAN RECOMBINANT RESIDUES 743-1636 DELETED
     Dosage: 3000 IU, AS NEEDED
     Route: 042
  3. XYNTHA [Suspect]
     Active Substance: ANTIHEMOPHILIC FACTOR, HUMAN RECOMBINANT RESIDUES 743-1636 DELETED
     Dosage: 4000 IU, ALTERNATE DAY (3X WEEKLY FOR 1 MONTH THEN AS NEEDED)
     Route: 042
  4. XYNTHA [Suspect]
     Active Substance: ANTIHEMOPHILIC FACTOR, HUMAN RECOMBINANT RESIDUES 743-1636 DELETED
     Dosage: 2,000 UNITS +/-10% ONCE PER DAY AS NEEDED, FOR MINOR BLEEDS X 3 DOSES
     Route: 042
  5. XYNTHA [Suspect]
     Active Substance: ANTIHEMOPHILIC FACTOR, HUMAN RECOMBINANT RESIDUES 743-1636 DELETED
     Dosage: ADMINISTER 4,000 UNITS +/-10% ONCE PER DAY, FOR MAJOR BLEEDS
     Route: 042

REACTIONS (3)
  - Ankle fracture [Unknown]
  - Haemorrhage [Not Recovered/Not Resolved]
  - Pain [Unknown]
